FAERS Safety Report 14003533 (Version 1)
Quarter: 2017Q3

REPORT INFORMATION
  Report Type: Spontaneous
  Country: GB (occurrence: GB)
  Receive Date: 20170922
  Receipt Date: 20170922
  Transmission Date: 20171128
  Serious: Yes (Other)
  Sender: FDA-Public Use
  Company Number: GB-ALSI-201700303

PATIENT
  Age: 6 Decade
  Sex: Male

DRUGS (1)
  1. MEDICAL GASEOUS OXYGEN OXYGEN [Suspect]
     Active Substance: OXYGEN
     Indication: PRODUCT USED FOR UNKNOWN INDICATION
     Route: 055

REACTIONS (3)
  - Intentional product misuse [Recovered/Resolved]
  - Burn infection [Recovered/Resolved]
  - Thermal burn [Recovered/Resolved]
